FAERS Safety Report 6581751-X (Version None)
Quarter: 2010Q1

REPORT INFORMATION
  Report Type: 
  Country: None (occurrence: None)
  Receive Date: 20100215
  Receipt Date: 20100208
  Transmission Date: 20100710
  Serious: Yes (Hospitalization)
  Sender: FDA-Public Use
  Company Number: PHHY2009DE53894

PATIENT
  Sex: Female

DRUGS (9)
  1. FEMARA [Suspect]
     Indication: BREAST CANCER
     Dosage: ONCE DAILY, UNK
     Route: 048
     Dates: start: 20090301, end: 20090901
  2. ACETYLSALICYLIC ACID [Concomitant]
     Dosage: 1 DF, UNK
     Route: 048
  3. METOPROLOL TARTRATE [Concomitant]
     Dosage: UNK
     Route: 048
  4. SIMVASTATIN [Concomitant]
  5. ENALAPRIL MALEATE [Concomitant]
     Route: 048
  6. PANTOZOL [Concomitant]
  7. DICLOFENAC [Concomitant]
     Dosage: 75 UNK, QD
  8. AMITRIPTYLINE HCL [Concomitant]
     Dosage: 25 UNK, QD
  9. MOVICOL [Concomitant]
     Dosage: 1 POUCH DAILY

REACTIONS (6)
  - APHASIA [None]
  - ARRHYTHMIA [None]
  - CEREBROVASCULAR ACCIDENT [None]
  - HEMIPARESIS [None]
  - LEUKOENCEPHALOPATHY [None]
  - VENTRICULAR EXTRASYSTOLES [None]
